FAERS Safety Report 16319535 (Version 1)
Quarter: 2019Q2

REPORT INFORMATION
  Report Type: Spontaneous
  Country: US (occurrence: US)
  Receive Date: 20190515
  Receipt Date: 20190515
  Transmission Date: 20190711
  Serious: Yes (Other)
  Sender: FDA-Public Use
  Company Number: None

PATIENT
  Age: 32 Year
  Sex: Female
  Weight: 59.4 kg

DRUGS (1)
  1. OCEAN POTION SPF 70 [Suspect]
     Active Substance: AVOBENZONE\HOMOSALATE\OCTISALATE\OCTOCRYLENE\OXYBENZONE
     Dosage: ?          OTHER FREQUENCY:USED ONCE TOTAL;?
     Route: 061
     Dates: start: 20190512, end: 20190512

REACTIONS (3)
  - Product quality issue [None]
  - Application site rash [None]
  - Application site pruritus [None]

NARRATIVE: CASE EVENT DATE: 20190514
